FAERS Safety Report 9656380 (Version 1)
Quarter: 2013Q4

REPORT INFORMATION
  Report Type: Spontaneous
  Country: US (occurrence: US)
  Receive Date: 20131030
  Receipt Date: 20131030
  Transmission Date: 20140711
  Serious: Yes (Other)
  Sender: FDA-Public Use
  Company Number: US-JNJFOC-20131014167

PATIENT
  Age: 83 Year
  Sex: Female
  Weight: 74.84 kg

DRUGS (1)
  1. XARELTO [Suspect]
     Indication: DEEP VEIN THROMBOSIS
     Route: 048
     Dates: start: 2013

REACTIONS (2)
  - Urinary tract infection [Not Recovered/Not Resolved]
  - Klebsiella infection [Recovered/Resolved]
